FAERS Safety Report 6767088-4 (Version None)
Quarter: 2010Q2

REPORT INFORMATION
  Report Type: 
  Country: None (occurrence: None)
  Receive Date: 20100614
  Receipt Date: 20100528
  Transmission Date: 20101027
  Serious: Yes (Other)
  Sender: FDA-Public Use
  Company Number: US-SHIRE-SPV1-2010-01039

PATIENT

DRUGS (2)
  1. VYVANSE [Suspect]
     Dosage: UNK, UNK
  2. VYVANSE [Suspect]
     Dosage: 1400 MG, ONE DOSE
     Route: 048
     Dates: start: 20100101

REACTIONS (2)
  - INSOMNIA [None]
  - INTENTIONAL OVERDOSE [None]
